FAERS Safety Report 5586512-6 (Version None)
Quarter: 2008Q1

REPORT INFORMATION
  Report Type: 
  Country: None (occurrence: None)
  Receive Date: 20080110
  Receipt Date: 20080102
  Transmission Date: 20080703
  Serious: Yes (Other)
  Sender: FDA-Public Use
  Company Number: US-ROCHE-508918

PATIENT
  Age: 23 Year
  Sex: Female
  Weight: 54.4 kg

DRUGS (2)
  1. ACCUTANE [Suspect]
     Indication: ACNE
     Route: 048
     Dates: start: 19930527, end: 19931101
  2. ACCUTANE [Suspect]
     Route: 048
     Dates: start: 19970212, end: 19970630

REACTIONS (6)
  - COLITIS ULCERATIVE [None]
  - DEPRESSION [None]
  - GESTATIONAL DIABETES [None]
  - INFLAMMATORY BOWEL DISEASE [None]
  - POSTPARTUM DEPRESSION [None]
  - PROCTITIS ULCERATIVE [None]
